FAERS Safety Report 9032622 (Version 2)
Quarter: 2013Q3

REPORT INFORMATION
  Report Type: Report from Study
  Country: MX (occurrence: MX)
  Receive Date: 20130122
  Receipt Date: 20130801
  Transmission Date: 20140515
  Serious: Yes (Death, Hospitalization)
  Sender: FDA-Public Use
  Company Number: PHHY2013MX005580

PATIENT
  Age: 77 Year
  Sex: Male

DRUGS (3)
  1. EXELON PATCH [Suspect]
     Indication: DEMENTIA ALZHEIMER^S TYPE
     Dosage: 4.6 MG, DAILY (5 CM2)
     Route: 062
     Dates: start: 201101
  2. MADOPAR [Concomitant]
     Indication: THYROID DISORDER
     Dosage: 1 DF, DAILY
     Dates: end: 201201
  3. ENALAPRIL [Concomitant]
     Indication: HYPERTENSION
     Dosage: 1 DF, DAILY
     Dates: end: 201301

REACTIONS (1)
  - Pneumonia [Fatal]
